FAERS Safety Report 7425707-3 (Version None)
Quarter: 2011Q2

REPORT INFORMATION
  Report Type: 
  Country: None (occurrence: None)
  Receive Date: 20110420
  Receipt Date: 20110406
  Transmission Date: 20111010
  Serious: Yes (Hospitalization, Other)
  Sender: FDA-Public Use
  Company Number: US-ELI_LILLY_AND_COMPANY-US201102007550

PATIENT
  Sex: Female

DRUGS (15)
  1. SALSALATE [Concomitant]
     Dosage: 750 MG, BID
  2. ZOCOR [Concomitant]
     Dosage: 10 MG, EACH EVENING
  3. LIDODERM [Concomitant]
     Indication: PAIN
     Dosage: 5 %, PRN
     Route: 062
  4. FORTEO [Suspect]
     Indication: OSTEOPOROSIS
     Dosage: 20 UG, DAILY (1/D)
     Route: 065
     Dates: start: 20110125, end: 20110215
  5. ASPIRIN [Concomitant]
     Dosage: 325 MG, QD
  6. COUMADIN [Concomitant]
     Dosage: 3 MG, QD
  7. LASIX [Concomitant]
     Dosage: 20 MG, QD
  8. NEXIUM [Concomitant]
     Dosage: 40 MG, QD
  9. TYLENOL                                 /SCH/ [Concomitant]
     Indication: PAIN
     Dosage: 650 MG, PRN
  10. COLACE [Concomitant]
     Indication: CONSTIPATION
     Dosage: 100 MG, PRN
  11. CALTRATE + D [Concomitant]
     Dosage: 600 MG, BID
  12. BIOTIN [Concomitant]
     Dosage: 2500 MG, QD
  13. DILTIAZEM [Concomitant]
     Dosage: 240 MG, QD
  14. PLAQUENIL [Concomitant]
     Dosage: 200 MG, BID
  15. METOPROLOL [Concomitant]
     Dosage: 12.5 MG, BID

REACTIONS (4)
  - EYELID FUNCTION DISORDER [None]
  - DIPLOPIA [None]
  - HEMIPARESIS [None]
  - CEREBROVASCULAR ACCIDENT [None]
